FAERS Safety Report 24356023 (Version 3)
Quarter: 2024Q4

REPORT INFORMATION
  Report Type: Report from Study
  Country: US (occurrence: US)
  Receive Date: 20240924
  Receipt Date: 20241016
  Transmission Date: 20250114
  Serious: Yes (Death)
  Sender: BIOGEN
  Company Number: US-BIOGEN-2024BI01283410

PATIENT
  Age: 40 Year
  Sex: Female

DRUGS (1)
  1. TYSABRI [Suspect]
     Active Substance: NATALIZUMAB
     Indication: Multiple sclerosis
     Route: 050
     Dates: start: 20190417, end: 20240725

REACTIONS (1)
  - Death [Fatal]

NARRATIVE: CASE EVENT DATE: 20240811
